FAERS Safety Report 8616775-1 (Version None)
Quarter: 2012Q3

REPORT INFORMATION
  Report Type: 
  Country: None (occurrence: None)
  Receive Date: 20120823
  Receipt Date: 20120816
  Transmission Date: 20120928
  Serious: Yes (Other)
  Sender: FDA-Public Use
  Company Number: ZA-BAYER-2012-085016

PATIENT
  Age: 21 Year
  Sex: Female

DRUGS (2)
  1. MIRENA [Suspect]
     Indication: ENDOMETRIOSIS
  2. MIRENA [Suspect]
     Indication: CONTRACEPTION
     Dosage: UNK
     Route: 015
     Dates: start: 20120530, end: 20120622

REACTIONS (2)
  - PAIN [None]
  - APPENDICITIS [None]
